FAERS Safety Report 12074963 (Version 1)
Quarter: 2016Q1

REPORT INFORMATION
  Report Type: Spontaneous
  Country: DK (occurrence: DK)
  Receive Date: 20160212
  Receipt Date: 20160212
  Transmission Date: 20160526
  Serious: Yes (Hospitalization)
  Sender: FDA-Public Use
  Company Number: DK-GLAXOSMITHKLINE-DK2015160828

PATIENT
  Sex: Male
  Weight: 75 kg

DRUGS (9)
  1. EXELON [Concomitant]
     Active Substance: RIVASTIGMINE TARTRATE
     Indication: DEMENTIA
     Dosage: UNK
     Dates: start: 2011, end: 20141021
  2. COMTESS [Concomitant]
     Active Substance: ENTACAPONE
     Indication: PARKINSON^S DISEASE
     Dosage: UNK
     Dates: start: 2006, end: 20141021
  3. MADOPAR DEPOT [Concomitant]
     Active Substance: BENSERAZIDE HYDROCHLORIDE\LEVODOPA
     Indication: PARKINSON^S DISEASE
     Dosage: UNK
     Dates: start: 2005, end: 20141021
  4. MADOPAR ^250^ [Suspect]
     Active Substance: BENSERAZIDE HYDROCHLORIDE\LEVODOPA
     Indication: PARKINSON^S DISEASE
     Route: 048
     Dates: start: 2003, end: 20141021
  5. REQUIP [Suspect]
     Active Substance: ROPINIROLE HYDROCHLORIDE
     Indication: PARKINSON^S DISEASE
     Dosage: STYRKE: 2 MG.
     Route: 048
     Dates: start: 2001, end: 200805
  6. MADOPAR [Suspect]
     Active Substance: BENSERAZIDE HYDROCHLORIDE\LEVODOPA
     Indication: PARKINSON^S DISEASE
     Dosage: DOSIS: VED BEHOV, MAX. 2 TABLETTER OM DAGEN.STYRKE: 12,5+50 MG.
     Route: 048
     Dates: start: 2004, end: 2013
  7. MINIRIN [Concomitant]
     Active Substance: DESMOPRESSIN ACETATE
     Indication: NOCTURIA
     Dosage: UNK
     Dates: start: 2012, end: 20141021
  8. LEPONEX [Concomitant]
     Active Substance: CLOZAPINE
     Indication: HALLUCINATION
     Dosage: UNK
     Dates: start: 2008, end: 20141021
  9. OXAZEPAM. [Concomitant]
     Active Substance: OXAZEPAM
     Indication: PARKINSON^S DISEASE
     Dosage: UNK
     Dates: start: 2002, end: 20141021

REACTIONS (11)
  - Delirium [None]
  - Insomnia [Unknown]
  - Aggression [None]
  - Parkinsonism [None]
  - Psychotic disorder [Recovered/Resolved]
  - Pneumonia aspiration [None]
  - Compulsive shopping [Not Recovered/Not Resolved]
  - Hallucination [None]
  - Off label use [Unknown]
  - Overdose [None]
  - Hypersexuality [Not Recovered/Not Resolved]
